FAERS Safety Report 13268047 (Version 1)
Quarter: 2017Q1

REPORT INFORMATION
  Report Type: Spontaneous
  Country: US (occurrence: US)
  Receive Date: 20170224
  Receipt Date: 20170224
  Transmission Date: 20170428
  Serious: No
  Sender: FDA-Public Use
  Company Number: US-MYLANLABS-2016M1028240

PATIENT
  Age: 54 Year
  Sex: Female

DRUGS (7)
  1. HYDROQUINONE. [Concomitant]
     Active Substance: HYDROQUINONE
     Indication: ACNE
     Dosage: UNK, QD
     Route: 061
  2. DESENEX                            /00101201/ [Concomitant]
     Indication: ACNE
     Dosage: UNK
     Route: 061
  3. TRETINOIN MYLAN [Suspect]
     Active Substance: TRETINOIN
     Indication: ACNE
     Dosage: THIN FILM TO FACE, QD
     Route: 061
     Dates: start: 2015, end: 2016
  4. TRETINOIN MYLAN [Suspect]
     Active Substance: TRETINOIN
     Dosage: THIN FILM TO FACE, QD
     Route: 061
     Dates: start: 2015
  5. TRETINOIN MYLAN [Suspect]
     Active Substance: TRETINOIN
     Dosage: THIN FILM TO FACE, QD
     Route: 061
     Dates: start: 2015
  6. TRETINOIN MYLAN [Suspect]
     Active Substance: TRETINOIN
     Dosage: THIN FILM TO FACE, QD
     Route: 061
     Dates: start: 2015
  7. TRETINOIN MYLAN [Suspect]
     Active Substance: TRETINOIN
     Dosage: THIN FILM TO FACE, QD
     Route: 061
     Dates: start: 2015

REACTIONS (1)
  - Drug ineffective [Not Recovered/Not Resolved]
